FAERS Safety Report 20547178 (Version 1)
Quarter: 2022Q1

REPORT INFORMATION
  Report Type: Spontaneous
  Country: CN (occurrence: CN)
  Receive Date: 20220303
  Receipt Date: 20220303
  Transmission Date: 20220423
  Serious: Yes (Other)
  Sender: FDA-Public Use
  Company Number: CN-PFIZER INC-202200301029

PATIENT
  Age: 68 Year
  Sex: Male
  Weight: 66 kg

DRUGS (9)
  1. VORICONAZOLE [Interacting]
     Active Substance: VORICONAZOLE
     Indication: Anti-infective therapy
     Dosage: 400 MG, 2X/DAY (LOADING DOSE)
     Route: 041
  2. VORICONAZOLE [Interacting]
     Active Substance: VORICONAZOLE
     Indication: Anti-infective therapy
     Dosage: 200 MG, 2X/DAY
     Route: 048
  3. TACROLIMUS [Interacting]
     Active Substance: TACROLIMUS
     Indication: Immunosuppression
     Dosage: 1 MG, 2X/DAY
     Route: 048
  4. TACROLIMUS [Interacting]
     Active Substance: TACROLIMUS
     Dosage: 0.25 MG, 2X/DAY
     Route: 048
  5. MEROPENEM [Concomitant]
     Active Substance: MEROPENEM
     Indication: Anti-infective therapy
     Dosage: 0.5 G, 3X/DAY
     Route: 041
  6. CASPOFUNGIN [Concomitant]
     Active Substance: CASPOFUNGIN
     Indication: Anti-infective therapy
     Dosage: 50 MG, 1X/DAY
     Route: 041
  7. SULFAMETHOXAZOLE [Concomitant]
     Active Substance: SULFAMETHOXAZOLE
     Indication: Anti-infective therapy
     Dosage: 1 DF, 4X/DAY
     Route: 048
  8. MYCOPHENOLATE SODIUM [Concomitant]
     Active Substance: MYCOPHENOLATE SODIUM
     Indication: Immunosuppression
     Dosage: 360 MG, 2X/DAY
     Route: 048
  9. METHYLPREDNISOLONE [Concomitant]
     Active Substance: METHYLPREDNISOLONE
     Indication: Immunosuppression
     Dosage: 8 MG, 1X/DAY
     Route: 048

REACTIONS (2)
  - Chloropsia [Recovered/Resolved]
  - Drug interaction [Recovered/Resolved]
